FAERS Safety Report 9094516 (Version 3)
Quarter: 2013Q2

REPORT INFORMATION
  Report Type: Spontaneous
  Country: JP (occurrence: JP)
  Receive Date: 20130220
  Receipt Date: 20130507
  Transmission Date: 20140414
  Serious: Yes (Hospitalization, Other)
  Sender: FDA-Public Use
  Company Number: JP-AMGEN-JPNSP2013011245

PATIENT
  Age: 60 Year
  Sex: Female
  Weight: 60 kg

DRUGS (14)
  1. ENBREL [Suspect]
     Indication: RHEUMATOID ARTHRITIS
     Dosage: 25 MG, 2X/WEEK
     Route: 058
     Dates: start: 20071102
  2. AZULFIDINE EN [Concomitant]
     Indication: RHEUMATOID ARTHRITIS
     Dosage: 1000 MG, UNK
     Route: 048
     Dates: start: 20070228, end: 20090108
  3. PREDONINE                          /00016201/ [Concomitant]
     Indication: RHEUMATOID ARTHRITIS
     Dosage: 5 MG, UNK
     Route: 048
     Dates: start: 20070228, end: 20100927
  4. METHOTREXATE [Concomitant]
     Indication: RHEUMATOID ARTHRITIS
     Dosage: 6 MG, UNK
     Route: 048
     Dates: start: 20070228, end: 20091029
  5. METHOTREXATE [Concomitant]
     Dosage: 4 MG, UNK
     Route: 048
     Dates: start: 20091030, end: 20110926
  6. METHOTREXATE [Concomitant]
     Dosage: 6 MG, UNK
     Route: 048
     Dates: start: 20110927
  7. BREDININ [Concomitant]
     Indication: RHEUMATOID ARTHRITIS
     Dosage: 100 MG, UNK
     Route: 048
     Dates: start: 20070425, end: 20070724
  8. BREDININ [Concomitant]
     Dosage: 200 MG, UNK
     Route: 048
     Dates: start: 20070725, end: 20121210
  9. TAGAMET                            /00397401/ [Concomitant]
     Indication: RHEUMATOID ARTHRITIS
     Dosage: 400 MG, UNK
     Route: 048
     Dates: start: 20101130, end: 20130204
  10. VOLTAREN                           /00372301/ [Concomitant]
     Indication: RHEUMATOID ARTHRITIS
     Dosage: 75 MG, UNK
     Route: 048
     Dates: start: 20070228, end: 20081007
  11. CELECOX [Concomitant]
     Indication: RHEUMATOID ARTHRITIS
     Dosage: 200 MG, UNK
     Route: 048
     Dates: start: 20081008
  12. RIMATIL [Concomitant]
     Indication: RHEUMATOID ARTHRITIS
     Dosage: 200 MG, UNK
     Route: 048
     Dates: start: 20090109, end: 20121210
  13. PROGRAF [Concomitant]
     Indication: RHEUMATOID ARTHRITIS
     Dosage: 1.5 MG, UNK
     Route: 048
     Dates: start: 20090123, end: 20090305
  14. PROGRAF [Concomitant]
     Dosage: 2 MG, UNK
     Route: 048
     Dates: start: 20090306

REACTIONS (3)
  - Nephritis [Recovering/Resolving]
  - Spinal osteoarthritis [Recovering/Resolving]
  - Sinusitis fungal [Recovered/Resolved]
